FAERS Safety Report 7445651-5 (Version None)
Quarter: 2011Q2

REPORT INFORMATION
  Report Type: 
  Country: None (occurrence: None)
  Receive Date: 20110429
  Receipt Date: 20110427
  Transmission Date: 20111010
  Serious: Yes (Other)
  Sender: FDA-Public Use
  Company Number: AU-ROCHE-755131

PATIENT
  Sex: Female
  Weight: 78 kg

DRUGS (3)
  1. ACTEMRA [Suspect]
     Indication: RHEUMATOID ARTHRITIS
     Dosage: DOSE AS REPORTED: 624 MG
     Route: 042
     Dates: start: 20101214
  2. ACTEMRA [Suspect]
     Route: 042
     Dates: start: 20110111
  3. PREDNISOLONE [Concomitant]
     Indication: RHEUMATOID ARTHRITIS
     Route: 048

REACTIONS (3)
  - URINARY TRACT INFECTION [None]
  - PARAESTHESIA [None]
  - INFUSION RELATED REACTION [None]
